FAERS Safety Report 17780543 (Version 1)
Quarter: 2020Q2

REPORT INFORMATION
  Report Type: Spontaneous
  Country: US (occurrence: US)
  Receive Date: 20200513
  Receipt Date: 20200513
  Transmission Date: 20200714
  Serious: Yes (Death)
  Sender: FDA-Public Use
  Company Number: None

PATIENT
  Age: 75 Year
  Sex: Male

DRUGS (1)
  1. TOBRAMYCIN 300MG/5 ML [Suspect]
     Active Substance: TOBRAMYCIN
     Indication: BRONCHIECTASIS
     Dosage: 300MG/5ML
     Route: 055
     Dates: start: 20200323, end: 20200501

REACTIONS (1)
  - Death [None]

NARRATIVE: CASE EVENT DATE: 20200501
